FAERS Safety Report 13503318 (Version 1)
Quarter: 2017Q2

REPORT INFORMATION
  Report Type: Spontaneous
  Country: US (occurrence: US)
  Receive Date: 20170502
  Receipt Date: 20170502
  Transmission Date: 20170830
  Serious: Yes (Hospitalization)
  Sender: FDA-Public Use
  Company Number: None

PATIENT
  Age: 51 Year
  Sex: Female
  Weight: 97.07 kg

DRUGS (9)
  1. GABAPENTIN. [Concomitant]
     Active Substance: GABAPENTIN
  2. MECLIZINE [Concomitant]
     Active Substance: MECLIZINE HYDROCHLORIDE
  3. TRAMADOL. [Concomitant]
     Active Substance: TRAMADOL
  4. BUMETANIDE. [Concomitant]
     Active Substance: BUMETANIDE
  5. WARFARIN [Suspect]
     Active Substance: WARFARIN
     Indication: PRODUCT USED FOR UNKNOWN INDICATION
     Route: 048
     Dates: start: 20160401, end: 20170502
  6. MAGNESIUM OXIDE. [Concomitant]
     Active Substance: MAGNESIUM OXIDE
  7. ASA [Concomitant]
     Active Substance: ASPIRIN
  8. FIORICET [Concomitant]
     Active Substance: ACETAMINOPHEN\BUTALBITAL\CAFFEINE
  9. SILDENAFIL. [Concomitant]
     Active Substance: SILDENAFIL

REACTIONS (1)
  - International normalised ratio increased [None]

NARRATIVE: CASE EVENT DATE: 20170502
